FAERS Safety Report 20115737 (Version 1)
Quarter: 2021Q4

REPORT INFORMATION
  Report Type: Spontaneous
  Country: IT (occurrence: IT)
  Receive Date: 20211126
  Receipt Date: 20211126
  Transmission Date: 20220303
  Serious: Yes (Hospitalization, Other)
  Sender: FDA-Public Use
  Company Number: IT-ABBVIE-21K-083-4175295-00

PATIENT
  Age: 46 Year
  Sex: Female

DRUGS (9)
  1. VALPROATE SODIUM [Suspect]
     Active Substance: VALPROATE SODIUM
     Indication: Drug abuse
     Route: 048
  2. DELORAZEPAM [Suspect]
     Active Substance: DELORAZEPAM
     Indication: Drug abuse
     Route: 048
  3. QUETIAPINE FUMARATE [Suspect]
     Active Substance: QUETIAPINE FUMARATE
     Indication: Drug abuse
     Route: 048
  4. BUPROPION HYDROCHLORIDE [Suspect]
     Active Substance: BUPROPION HYDROCHLORIDE
     Indication: Drug abuse
     Route: 048
  5. TRAZODONE HYDROCHLORIDE [Suspect]
     Active Substance: TRAZODONE HYDROCHLORIDE
     Indication: Drug abuse
     Route: 048
  6. LEVOMEPROMAZINE [Suspect]
     Active Substance: LEVOMEPROMAZINE
     Indication: Drug abuse
     Route: 048
  7. FLURAZEPAM MONOHYDROCHLORIDE [Suspect]
     Active Substance: FLURAZEPAM MONOHYDROCHLORIDE
     Indication: Drug abuse
     Route: 048
  8. HALOPERIDOL [Suspect]
     Active Substance: HALOPERIDOL
     Indication: Drug abuse
     Route: 048
  9. LYRICA [Concomitant]
     Active Substance: PREGABALIN
     Indication: Generalised anxiety disorder

REACTIONS (3)
  - Drug abuse [Unknown]
  - Sedation [Recovered/Resolved]
  - Intentional self-injury [Recovered/Resolved]

NARRATIVE: CASE EVENT DATE: 20200613
